FAERS Safety Report 5171442-4 (Version None)
Quarter: 2006Q4

REPORT INFORMATION
  Report Type: 
  Country: None (occurrence: None)
  Receive Date: 20061213
  Receipt Date: 20061121
  Transmission Date: 20070319
  Serious: Yes (Other)
  Sender: FDA-Public Use
  Company Number: JP-AVENTIS-200613650JP

PATIENT
  Age: 6 Month
  Sex: Male
  Weight: 6 kg

DRUGS (3)
  1. LASIX [Suspect]
     Indication: CARDIAC FAILURE
     Route: 048
     Dates: start: 20060630
  2. LASIX [Suspect]
     Route: 048
     Dates: start: 20060920, end: 20061118
  3. ALDACTONE [Suspect]
     Indication: CARDIAC FAILURE

REACTIONS (1)
  - CONVULSION [None]
